FAERS Safety Report 4264882-9 (Version None)
Quarter: 2004Q1

REPORT INFORMATION
  Report Type: 
  Country: None (occurrence: None)
  Receive Date: 20040105
  Receipt Date: 20031222
  Transmission Date: 20041129
  Serious: Yes (Hospitalization)
  Sender: FDA-Public Use
  Company Number: 03P-056-0245609-00

PATIENT
  Age: 50 Year
  Sex: Female
  Weight: 36 kg

DRUGS (3)
  1. DEPAKENE [Suspect]
     Dosage: 500 MG, 2 IN 1 D, ORAL
     Route: 048
     Dates: start: 20011022, end: 20031022
  2. CLORAZEPATE DIPOTASSIUM [Suspect]
     Dosage: 50 MG, 1 IN 1 D,  ORAL
     Route: 048
     Dates: start: 20011022, end: 20031022
  3. TRIZIVIR [Suspect]
     Indication: HIV INFECTION
     Dosage: 1 UNIT, 2 IN 1 D, ORAL
     Route: 048
     Dates: start: 20030213, end: 20031020

REACTIONS (9)
  - CEREBRAL ATROPHY [None]
  - CONFUSIONAL STATE [None]
  - CULTURE URINE POSITIVE [None]
  - ESCHERICHIA INFECTION [None]
  - GENERAL PHYSICAL HEALTH DETERIORATION [None]
  - MYELODYSPLASTIC SYNDROME [None]
  - PANCYTOPENIA [None]
  - PYREXIA [None]
  - REFUSAL OF TREATMENT BY PATIENT [None]
